FAERS Safety Report 23580521 (Version 1)
Quarter: 2024Q1

REPORT INFORMATION
  Report Type: Spontaneous
  Country: IT (occurrence: IT)
  Receive Date: 20240229
  Receipt Date: 20240229
  Transmission Date: 20240409
  Serious: Yes (Hospitalization)
  Sender: FDA-Public Use
  Company Number: IT-ROCHE-2209044

PATIENT
  Age: 68 Year
  Sex: Female
  Weight: 77 kg

DRUGS (15)
  1. DOCETAXEL [Suspect]
     Active Substance: DOCETAXEL\DOCETAXEL ANHYDROUS
     Indication: Breast cancer
     Dosage: 75 MG/M2, TIW (MOST RECENT DOSE PRIOR TO THE EVENT WAS RECEIVED ON 06/12/2017)
     Route: 042
     Dates: start: 20170726, end: 20170906
  2. LETROZOLE [Suspect]
     Active Substance: LETROZOLE
     Indication: Breast cancer
     Dosage: 2.5 MG, QD
     Route: 048
     Dates: start: 20180209
  3. PERTUZUMAB [Suspect]
     Active Substance: PERTUZUMAB
     Indication: Breast cancer
     Dosage: 840 MG, TIW MOST RECENT DOSE PRIOR TO THE EVENT WAS RECEIVED ON 05/01/2018
     Route: 042
     Dates: start: 20170818, end: 20170818
  4. TRASTUZUMAB [Suspect]
     Active Substance: TRASTUZUMAB
     Indication: Breast cancer
     Dosage: 600 MG, TIW (MOST RECENT DOSE PRIOR TO THE EVENT WAS RECEIVED ON 05/01/2018)
     Route: 042
     Dates: start: 20170726, end: 20170726
  5. DELORAZEPAM [Concomitant]
     Active Substance: DELORAZEPAM
     Indication: Product used for unknown indication
     Dosage: UNK
     Route: 065
     Dates: start: 20180405
  6. LEVOTHYROXINE SODIUM [Concomitant]
     Active Substance: LEVOTHYROXINE SODIUM
     Indication: Product used for unknown indication
     Dosage: UNK
     Route: 065
  7. KCL [Concomitant]
     Active Substance: POTASSIUM CHLORIDE
     Indication: Product used for unknown indication
     Dosage: UNK
     Route: 065
     Dates: start: 20180427
  8. KCL [Concomitant]
     Active Substance: POTASSIUM CHLORIDE
     Dosage: ONGOING = CHECKED
     Route: 065
     Dates: start: 20180427
  9. KCL [Concomitant]
     Active Substance: POTASSIUM CHLORIDE
     Dosage: ONGOING = CHECKED
     Route: 065
     Dates: start: 20180427
  10. LOPERAMIDE [Concomitant]
     Active Substance: LOPERAMIDE
     Indication: Diarrhoea
     Dosage: UNK
     Route: 065
     Dates: start: 20170906
  11. LOPERAMIDE [Concomitant]
     Active Substance: LOPERAMIDE
     Dosage: UNK
     Route: 065
     Dates: start: 20180126
  12. HYDROCHLOROTHIAZIDE\TELMISARTAN [Concomitant]
     Active Substance: HYDROCHLOROTHIAZIDE\TELMISARTAN
     Indication: Product used for unknown indication
     Dosage: UNK
     Route: 065
     Dates: start: 20100310
  13. HYDROCHLOROTHIAZIDE\TELMISARTAN [Concomitant]
     Active Substance: HYDROCHLOROTHIAZIDE\TELMISARTAN
     Dosage: ONGOING = CHECKED
     Route: 065
     Dates: start: 20100310
  14. HYDROCHLOROTHIAZIDE\TELMISARTAN [Concomitant]
     Active Substance: HYDROCHLOROTHIAZIDE\TELMISARTAN
     Dosage: ONGOING = CHECKED
     Route: 065
     Dates: start: 20100310
  15. SERTRALINE [Concomitant]
     Active Substance: SERTRALINE HYDROCHLORIDE
     Indication: Major depression
     Dosage: UNK
     Route: 065
     Dates: start: 20171113

REACTIONS (1)
  - Paralysis recurrent laryngeal nerve [Recovered/Resolved]

NARRATIVE: CASE EVENT DATE: 20180910
